FAERS Safety Report 9341567 (Version 2)
Quarter: 2013Q4

REPORT INFORMATION
  Report Type: Spontaneous
  Country: US (occurrence: US)
  Receive Date: 20130611
  Receipt Date: 20131018
  Transmission Date: 20140711
  Serious: Yes (Life-Threatening, Other)
  Sender: FDA-Public Use
  Company Number: PHEH2013US012319

PATIENT
  Sex: Female
  Weight: 81.63 kg

DRUGS (1)
  1. CLOZARIL [Suspect]
     Indication: MENTAL DISORDER
     Dosage: 100 MG/KG, ONCE DAILY
     Route: 048

REACTIONS (2)
  - Feeling abnormal [Unknown]
  - General physical health deterioration [Unknown]
